FAERS Safety Report 10137991 (Version 2)
Quarter: 2014Q2

REPORT INFORMATION
  Report Type: Report from Study
  Country: CA (occurrence: CA)
  Receive Date: 20140429
  Receipt Date: 20140429
  Transmission Date: 20141212
  Serious: Yes (Other)
  Sender: FDA-Public Use
  Company Number: CA-JNJFOC-20130811232

PATIENT
  Sex: Male
  Weight: 78.2 kg

DRUGS (2)
  1. REMICADE [Suspect]
     Indication: COLITIS ULCERATIVE
     Dosage: 7-8 WEEKS
     Route: 042
     Dates: start: 201111
  2. ASACOL [Concomitant]

REACTIONS (1)
  - Pregnancy of partner [Recovered/Resolved]
